FAERS Safety Report 11057237 (Version 1)
Quarter: 2015Q2

REPORT INFORMATION
  Report Type: Spontaneous
  Country: ES (occurrence: ES)
  Receive Date: 20150422
  Receipt Date: 20150422
  Transmission Date: 20150821
  Serious: Yes (Other)
  Sender: FDA-Public Use
  Company Number: ES-JNJFOC-20150317617

PATIENT

DRUGS (2)
  1. USTEKINUMAB [Suspect]
     Active Substance: USTEKINUMAB
     Indication: PSORIASIS
     Route: 058
  2. USTEKINUMAB [Suspect]
     Active Substance: USTEKINUMAB
     Indication: PSORIASIS
     Route: 058

REACTIONS (10)
  - Polyarthritis [Unknown]
  - Intervertebral discitis [Unknown]
  - Tonsillitis [Unknown]
  - Drug ineffective [Unknown]
  - Blepharitis [Unknown]
  - Acarodermatitis [Unknown]
  - Pertussis [Unknown]
  - Bronchitis [Unknown]
  - Influenza [Unknown]
  - Skin papilloma [Unknown]
